FAERS Safety Report 4501062-3 (Version None)
Quarter: 2004Q4

REPORT INFORMATION
  Report Type: 
  Country: None (occurrence: None)
  Receive Date: 20041110
  Receipt Date: 20041027
  Transmission Date: 20050328
  Serious: Yes (Hospitalization, Disabling)
  Sender: FDA-Public Use
  Company Number: 2004-BP-06108BP

PATIENT
  Age: 49 Year
  Sex: Male

DRUGS (2)
  1. MOBIC [Suspect]
     Indication: UVEITIS
     Dosage: SEE IMAGE
     Route: 048
     Dates: start: 20030813, end: 20031103
  2. MOBIC [Suspect]
     Indication: UVEITIS
     Dosage: SEE IMAGE
     Route: 048
     Dates: start: 20040201, end: 20040423

REACTIONS (11)
  - ABDOMINAL PAIN UPPER [None]
  - CANDIDIASIS [None]
  - CROHN'S DISEASE [None]
  - DEHYDRATION [None]
  - DIARRHOEA HAEMORRHAGIC [None]
  - GASTROINTESTINAL DISORDER [None]
  - HAEMATEMESIS [None]
  - HERPES ZOSTER [None]
  - INFECTION [None]
  - IRRITABLE BOWEL SYNDROME [None]
  - SWELLING [None]
